FAERS Safety Report 7280354-1 (Version None)
Quarter: 2011Q1

REPORT INFORMATION
  Report Type: 
  Country: None (occurrence: None)
  Receive Date: 20110208
  Receipt Date: 20110127
  Transmission Date: 20110831
  Serious: Yes (Hospitalization)
  Sender: FDA-Public Use
  Company Number: US-ELI_LILLY_AND_COMPANY-US201005002491

PATIENT
  Sex: Female

DRUGS (9)
  1. ANALGESICS [Concomitant]
     Indication: PAIN
  2. VICODIN [Concomitant]
     Dosage: UNK, UNKNOWN
     Route: 065
  3. OXYCODONE HCL [Concomitant]
     Dosage: UNK, UNKNOWN
     Route: 065
  4. ANTIHYPERTENSIVES [Concomitant]
  5. FORTEO [Suspect]
     Dosage: 20 UG, DAILY (1/D)
     Dates: end: 20100901
  6. NEXIUM [Concomitant]
     Indication: ABDOMINAL DISCOMFORT
  7. FORTEO [Suspect]
     Indication: OSTEOPOROSIS
     Dosage: 20 UG, DAILY (1/D)
  8. MAGNESIUM [Concomitant]
  9. CALCIUM + VITAMIN D [Concomitant]

REACTIONS (11)
  - DECREASED APPETITE [None]
  - GASTRIC DISORDER [None]
  - MALAISE [None]
  - NAUSEA [None]
  - HIP FRACTURE [None]
  - PAIN [None]
  - DIARRHOEA [None]
  - SPINAL FRACTURE [None]
  - WEIGHT DECREASED [None]
  - NEOPLASM SKIN [None]
  - BONE DENSITY DECREASED [None]
